FAERS Safety Report 24283037 (Version 2)
Quarter: 2024Q3

REPORT INFORMATION
  Report Type: Spontaneous
  Country: US (occurrence: US)
  Receive Date: 20240904
  Receipt Date: 20240919
  Transmission Date: 20241017
  Serious: No
  Sender: NOVARTIS
  Company Number: US-002147023-NVSC2024US177935

PATIENT
  Age: 75 Year
  Sex: Male

DRUGS (1)
  1. PLUVICTO [Suspect]
     Active Substance: LUTETIUM LU-177 VIPIVOTIDE TETRAXETAN
     Indication: Product used for unknown indication
     Dosage: UNK
     Route: 065

REACTIONS (1)
  - COVID-19 [Recovered/Resolved]

NARRATIVE: CASE EVENT DATE: 20240830
